FAERS Safety Report 8214600-4 (Version None)
Quarter: 2012Q1

REPORT INFORMATION
  Report Type: 
  Country: None (occurrence: None)
  Receive Date: 20120228
  Receipt Date: 20110525
  Transmission Date: 20120608
  Serious: Yes (Other)
  Sender: FDA-Public Use
  Company Number: RB-25278-2011

PATIENT
  Sex: Female

DRUGS (5)
  1. SUBOXONE [Suspect]
     Indication: DRUG DEPENDENCE
     Dosage: (DOSAGE INFORMATION UNKNOWN SUBLINGUAL), (8 MG SUBLINGUAL)
     Route: 060
     Dates: start: 20100401, end: 20101001
  2. SUBOXONE [Suspect]
     Indication: DRUG DEPENDENCE
     Dosage: (DOSAGE INFORMATION UNKNOWN SUBLINGUAL), (8 MG SUBLINGUAL)
     Route: 060
     Dates: start: 20090101, end: 20100401
  3. SUBOXONE [Suspect]
     Indication: DRUG DEPENDENCE
     Dosage: (8 MG 1X/WEEK SUBLINGUAL)
     Route: 060
     Dates: start: 20101001, end: 20110325
  4. YAZ [Concomitant]
  5. KLONOPIN [Concomitant]

REACTIONS (1)
  - HEPATITIS ACUTE [None]
